FAERS Safety Report 5381418-X (Version None)
Quarter: 2007Q3

REPORT INFORMATION
  Report Type: 
  Country: None (occurrence: None)
  Receive Date: 20070709
  Receipt Date: 20070628
  Transmission Date: 20080115
  Serious: Yes (Hospitalization, Disabling, Other)
  Sender: FDA-Public Use
  Company Number: JP-JNJFOC-20051002226

PATIENT
  Age: 84 Year
  Sex: Female
  Weight: 49 kg

DRUGS (2)
  1. FENTANYL [Suspect]
     Indication: ARTHRALGIA
     Route: 062
  2. FENTANYL [Suspect]
     Route: 062

REACTIONS (13)
  - ACUTE PRERENAL FAILURE [None]
  - ALTERED STATE OF CONSCIOUSNESS [None]
  - ANAEMIA [None]
  - ANALGESIC DRUG LEVEL INCREASED [None]
  - BRAIN DAMAGE [None]
  - DEHYDRATION [None]
  - DRUG ADMINISTRATION ERROR [None]
  - ENCEPHALOPATHY [None]
  - HYPOALBUMINAEMIA [None]
  - HYPOXIA [None]
  - MENTAL STATUS CHANGES [None]
  - NARCOTIC INTOXICATION [None]
  - THERMAL BURN [None]
